FAERS Safety Report 4452975-2 (Version None)
Quarter: 2004Q3

REPORT INFORMATION
  Report Type: 
  Country: None (occurrence: None)
  Receive Date: 20040916
  Receipt Date: 20040831
  Transmission Date: 20050211
  Serious: Yes (Other)
  Sender: FDA-Public Use
  Company Number: 182646

PATIENT
  Age: 66 Year
  Sex: Male
  Weight: 99.7913 kg

DRUGS (8)
  1. AVONEX [Suspect]
     Indication: MULTIPLE SCLEROSIS
     Dosage: 30 MCG QW IM
     Route: 030
     Dates: start: 20020218, end: 20030101
  2. AVONEX [Suspect]
     Indication: MULTIPLE SCLEROSIS
     Dates: start: 20031013
  3. BACLOFEN [Concomitant]
  4. COPAXONE [Concomitant]
  5. NEURONTIN [Concomitant]
  6. VALIUM [Concomitant]
  7. ECOTRIN [Concomitant]
  8. LISINOPRIL [Concomitant]

REACTIONS (4)
  - HEPATIC ENZYME INCREASED [None]
  - MULTIPLE SCLEROSIS [None]
  - PROSTATE CANCER [None]
  - URINARY TRACT INFECTION [None]
